FAERS Safety Report 17118590 (Version 7)
Quarter: 2021Q4

REPORT INFORMATION
  Report Type: Spontaneous
  Country: PK (occurrence: PK)
  Receive Date: 20191206
  Receipt Date: 20211011
  Transmission Date: 20220304
  Serious: Yes (Other)
  Sender: FDA-Public Use
  Company Number: PK-PFIZER INC-2019518552

PATIENT
  Age: 19 Year
  Sex: Male
  Weight: 49 kg

DRUGS (13)
  1. ENBREL [Suspect]
     Active Substance: ETANERCEPT
     Indication: Juvenile spondyloarthritis
     Dosage: UNK
     Route: 065
     Dates: start: 20191128
  2. ENBREL [Suspect]
     Active Substance: ETANERCEPT
     Indication: Ankylosing spondylitis
     Dosage: 50 MG, WEEKLY
     Route: 058
  3. ENBREL [Suspect]
     Active Substance: ETANERCEPT
     Dosage: 50 MG, WEEKLY
     Route: 058
     Dates: start: 20201019, end: 20210119
  4. ENBREL [Suspect]
     Active Substance: ETANERCEPT
     Dosage: 50 MG, WEEKLY
     Route: 058
  5. ENBREL [Suspect]
     Active Substance: ETANERCEPT
     Dosage: 50 MG, EVERY TWO WEEKS
     Route: 058
  6. METHOTREXATE [Concomitant]
     Active Substance: METHOTREXATE
     Dosage: 10 MG, WEEKLY (AFTER MEAL, CONTINUE, 1HRS AFTER BREAKFAST)
     Dates: start: 201906
  7. FOLIC ACID [Concomitant]
     Active Substance: FOLIC ACID
     Dosage: 5 MG, 2X/WEEK (MON TUE)
  8. SALAZODINE [Concomitant]
     Dosage: 1000 MG, 2X/DAY (2 TABLETS MORNING+2 TABLETS EVENING AFTER MEAL TO CONTINUE)
     Dates: start: 2015, end: 202011
  9. ACECLOFENAC [Concomitant]
     Active Substance: ACECLOFENAC
     Dosage: UNK (1+1)
  10. ACECLOFENAC [Concomitant]
     Active Substance: ACECLOFENAC
     Dosage: 100 MG, 1X/DAY(1X OD FEW WEEKS)
  11. ACECLOFENAC [Concomitant]
     Active Substance: ACECLOFENAC
     Dosage: 100 MG 2-3 TIMES/WEEK
  12. NEXIUM [Concomitant]
     Active Substance: ESOMEPRAZOLE MAGNESIUM
     Dosage: 20 MG, ONCE CAPSULE ONCE A DAY BEFORE MEAL TO CONTINUE
  13. SANGOBION [FERRIC HYDROXIDE POLYMALTOSE COMPLEX;FOLIC ACID] [Concomitant]
     Dosage: 1 DF, 1X/DAY (ONE CAPSULE IN AFTERNOON AFTER MEAL TO CONTINUE, OFF ON METHOTREXATE DAYS DAY 1)

REACTIONS (18)
  - Haematuria [Unknown]
  - Gingival bleeding [Unknown]
  - Pain in extremity [Unknown]
  - Mouth ulceration [Unknown]
  - Off label use [Unknown]
  - Musculoskeletal stiffness [Unknown]
  - Joint range of motion decreased [Unknown]
  - Red blood cell sedimentation rate increased [Recovering/Resolving]
  - Off label use [Unknown]
  - Cough [Recovered/Resolved]
  - Back pain [Recovered/Resolved]
  - Nephrolithiasis [Unknown]
  - Pyrexia [Recovered/Resolved]
  - Rash [Unknown]
  - Drug ineffective for unapproved indication [Unknown]
  - Infection [Unknown]
  - Alanine aminotransferase increased [Unknown]
  - Aspartate aminotransferase increased [Unknown]

NARRATIVE: CASE EVENT DATE: 20191030
